FAERS Safety Report 22190072 (Version 2)
Quarter: 2023Q4

REPORT INFORMATION
  Report Type: Report from Study
  Country: ES (occurrence: ES)
  Receive Date: 20230410
  Receipt Date: 20231205
  Transmission Date: 20240109
  Serious: Yes (Other)
  Sender: FDA-Public Use
  Company Number: ES-ABBVIE-4719963

PATIENT
  Age: 66 Year
  Sex: Female
  Weight: 84 kg

DRUGS (9)
  1. UPADACITINIB [Suspect]
     Active Substance: UPADACITINIB
     Indication: Rheumatoid arthritis
     Route: 048
     Dates: start: 20210618
  2. Severe acute respiratory syndrome coronavirus 2 (SARS-CoV-2) vaccine [Concomitant]
     Indication: Product used for unknown indication
     Dosage: LAST ADMINISTRATION DATE:2021
     Dates: start: 20210506
  3. Severe acute respiratory syndrome coronavirus 2 (SARS-CoV-2) vaccine [Concomitant]
     Indication: Product used for unknown indication
     Dosage: LAST ADMINISTRATION DATE:2021
     Dates: start: 20210527
  4. Severe acute respiratory syndrome coronavirus 2 (SARS-CoV-2) vaccine [Concomitant]
     Indication: Product used for unknown indication
     Dates: start: 20211008
  5. ATORVASTATIN [Concomitant]
     Active Substance: ATORVASTATIN
     Indication: Dyslipidaemia
     Dosage: FREQUENCY TEXT: ONCE
     Route: 048
     Dates: start: 20220315
  6. METHOTREXATE [Concomitant]
     Active Substance: METHOTREXATE
     Indication: Product used for unknown indication
     Route: 058
     Dates: start: 20191030
  7. FLUOXETINE [Concomitant]
     Active Substance: FLUOXETINE HYDROCHLORIDE
     Indication: Depression
     Dosage: FREQUENCY TEXT: ONCE
     Route: 048
     Dates: start: 20230202
  8. LORAZEPAM [Concomitant]
     Active Substance: LORAZEPAM
     Indication: Depression
     Dates: start: 20230202
  9. VITAMIN D [Concomitant]
     Active Substance: VITAMIN D NOS
     Indication: Prophylaxis
     Dates: start: 20230202

REACTIONS (1)
  - Carpal tunnel syndrome [Recovered/Resolved]

NARRATIVE: CASE EVENT DATE: 20221202
